FAERS Safety Report 21411806 (Version 1)
Quarter: 2022Q4

REPORT INFORMATION
  Report Type: Spontaneous
  Country: GB (occurrence: GB)
  Receive Date: 20221005
  Receipt Date: 20221005
  Transmission Date: 20230113
  Serious: Yes (Other)
  Sender: FDA-Public Use
  Company Number: GB-AMGEN-GBRSP2022168421

PATIENT
  Age: 72 Year
  Sex: Female

DRUGS (5)
  1. FILGRASTIM [Suspect]
     Active Substance: FILGRASTIM
     Indication: Agranulocytosis
     Dosage: 300 MICROGRAM
     Route: 065
  2. FILGRASTIM [Suspect]
     Active Substance: FILGRASTIM
     Indication: Off label use
  3. CLOZAPINE [Concomitant]
     Active Substance: CLOZAPINE
     Dosage: 250 MILLIGRAM, QD
     Route: 065
  4. HYOSCINE HYDROBROMIDE TRIHYDRATE [Concomitant]
     Dosage: 300 MICROGRAM, TID (AS REQUIRED)
     Route: 065
  5. CHOLECALCIFEROL [Concomitant]
     Active Substance: CHOLECALCIFEROL
     Dosage: 800 UNIT, QD (EVERY MORNING)
     Route: 065

REACTIONS (3)
  - Delusion [Unknown]
  - Off label use [Unknown]
  - Drug effective for unapproved indication [Unknown]
